FAERS Safety Report 22107807 (Version 1)
Quarter: 2023Q1

REPORT INFORMATION
  Report Type: Other
  Country: US (occurrence: None)
  Receive Date: 20230317
  Receipt Date: 20230317
  Transmission Date: 20230418
  Serious: Yes (Other)
  Sender: FDA-Public Use
  Company Number: US-ROCHE-3309340

PATIENT
  Age: 14 Year

DRUGS (1)
  1. EMICIZUMAB [Suspect]
     Active Substance: EMICIZUMAB
     Indication: Prophylaxis
     Route: 065

REACTIONS (2)
  - Muscle haemorrhage [Unknown]
  - Drug ineffective [Unknown]
